FAERS Safety Report 17563042 (Version 2)
Quarter: 2020Q2

REPORT INFORMATION
  Report Type: Report from Study
  Country: None (occurrence: US)
  Receive Date: 20200320
  Receipt Date: 20200405
  Transmission Date: 20200713
  Serious: Yes (Hospitalization, Other)
  Sender: FDA-Public Use
  Company Number: US-ABBVIE-20K-163-3327654-00

PATIENT
  Sex: Female

DRUGS (1)
  1. HUMIRA [Suspect]
     Active Substance: ADALIMUMAB
     Indication: CROHN^S DISEASE
     Route: 058
     Dates: start: 20190613

REACTIONS (13)
  - Weight decreased [Not Recovered/Not Resolved]
  - Small intestinal obstruction [Recovering/Resolving]
  - Hypotension [Recovering/Resolving]
  - Blood glucose decreased [Recovering/Resolving]
  - Nausea [Not Recovered/Not Resolved]
  - Depressed mood [Not Recovered/Not Resolved]
  - Abdominal pain [Not Recovered/Not Resolved]
  - Application site pruritus [Recovered/Resolved]
  - Influenza [Unknown]
  - Decreased appetite [Not Recovered/Not Resolved]
  - Application site irritation [Unknown]
  - Insomnia [Not Recovered/Not Resolved]
  - Diarrhoea [Not Recovered/Not Resolved]
